FAERS Safety Report 7732717-5 (Version None)
Quarter: 2011Q3

REPORT INFORMATION
  Report Type: 
  Country: None (occurrence: None)
  Receive Date: 20110907
  Receipt Date: 20110829
  Transmission Date: 20111222
  Serious: No
  Sender: FDA-Public Use
  Company Number: US-BIOGENIDEC-2011BI032997

PATIENT
  Age: 44 Year
  Sex: Female

DRUGS (1)
  1. AVONEX [Suspect]
     Indication: MULTIPLE SCLEROSIS
     Route: 030
     Dates: start: 20110318

REACTIONS (10)
  - ABASIA [None]
  - VISION BLURRED [None]
  - NASOPHARYNGITIS [None]
  - PAIN IN EXTREMITY [None]
  - INSOMNIA [None]
  - HYPOAESTHESIA [None]
  - SOPOR [None]
  - MULTIPLE SCLEROSIS [None]
  - PYREXIA [None]
  - PAIN [None]
